FAERS Safety Report 8961447 (Version 1)
Quarter: 2012Q4

REPORT INFORMATION
  Report Type: Report from Study
  Country: FR (occurrence: FR)
  Receive Date: 20121212
  Receipt Date: 20121212
  Transmission Date: 20130627
  Serious: Yes (Hospitalization)
  Sender: FDA-Public Use
  Company Number: FR-BAXTER-2012BAX026070

PATIENT
  Age: 70 Year
  Sex: Male

DRUGS (8)
  1. ENDOXAN 2000 MG, LYOPHILISAT POUR SOLUTION INJECTABLE [Suspect]
     Indication: MANTLE CELL LYMPHOMA
     Dosage: 10237.5 MG/U
     Route: 065
     Dates: start: 20061208, end: 20070518
  2. RITUXIMAB [Suspect]
     Indication: MANTLE CELL LYMPHOMA
     Route: 065
     Dates: start: 20061208, end: 20080819
  3. FLUINDIONE [Suspect]
     Indication: DRUG USE FOR UNKNOWN INDICATION
     Route: 065
  4. DOXORUBICIN [Suspect]
     Indication: MANTLE CELL LYMPHOMA
     Dosage: 683 MG/U
     Route: 065
     Dates: start: 20061208, end: 20070518
  5. METHYLPREDNISOLONE [Suspect]
     Indication: MANTLE CELL LYMPHOMA
     Dosage: 540 MG/U
     Route: 065
     Dates: start: 20061208, end: 20070518
  6. VINCRISTINE [Suspect]
     Indication: MANTLE CELL LYMPHOMA
     Dosage: 16 MG/U
     Route: 065
     Dates: start: 20061208, end: 20070518
  7. CORTANCYL [Suspect]
     Indication: MANTLE CELL LYMPHOMA
     Route: 065
     Dates: start: 20061208, end: 20070518
  8. PENTOXIFYLLINE [Suspect]
     Indication: DRUG USE FOR UNKNOWN INDICATION
     Route: 065

REACTIONS (1)
  - Retroperitoneal haematoma [Recovered/Resolved]
